FAERS Safety Report 19562973 (Version 1)
Quarter: 2021Q3

REPORT INFORMATION
  Report Type: Spontaneous
  Country: US (occurrence: US)
  Receive Date: 20210716
  Receipt Date: 20210716
  Transmission Date: 20211014
  Serious: Yes (Hospitalization)
  Sender: FDA-Public Use
  Company Number: None

PATIENT
  Age: 60 Year
  Sex: Female

DRUGS (1)
  1. ENBREL [Suspect]
     Active Substance: ETANERCEPT
     Indication: RHEUMATOID ARTHRITIS
     Dosage: ?          OTHER FREQUENCY:EVERY 21 DAYS;?
     Route: 058
     Dates: start: 20180131

REACTIONS (4)
  - Musculoskeletal stiffness [None]
  - Depression [None]
  - Condition aggravated [None]
  - Pain [None]

NARRATIVE: CASE EVENT DATE: 20210625
